FAERS Safety Report 7939700-5 (Version None)
Quarter: 2011Q4

REPORT INFORMATION
  Report Type: 
  Country: None (occurrence: None)
  Receive Date: 20111125
  Receipt Date: 20111115
  Transmission Date: 20120403
  Serious: No
  Sender: FDA-Public Use
  Company Number: PHEH2011US009522

PATIENT
  Sex: Female

DRUGS (13)
  1. RAMIPRIL [Concomitant]
  2. FUROSEMIDE [Concomitant]
  3. ALTACE [Concomitant]
     Dosage: 2.5 MG
  4. CLARITIN [Concomitant]
     Dosage: 10 MG,
  5. AMLODIPINE [Concomitant]
  6. TASIGNA [Suspect]
  7. OMEPRAZOLE [Concomitant]
     Dosage: 20 MG,
  8. MULTI-VITAMIN [Concomitant]
  9. ASPIRIN [Concomitant]
     Dosage: 81 MG
  10. METOPROLOL TARTRATE [Concomitant]
  11. HYDROXYUREA [Concomitant]
     Dosage: 500 MG, UNK
  12. CALCIUM CARBONATE [Concomitant]
     Dosage: 600 MG
  13. CALCIUM CARBONATE [Concomitant]
     Dosage: 500 MG, UNK

REACTIONS (4)
  - MOOD SWINGS [None]
  - NAUSEA [None]
  - CONSTIPATION [None]
  - MEMORY IMPAIRMENT [None]
